FAERS Safety Report 13053362 (Version 8)
Quarter: 2021Q2

REPORT INFORMATION
  Report Type: Report from Study
  Country: US (occurrence: US)
  Receive Date: 20161222
  Receipt Date: 20210611
  Transmission Date: 20210716
  Serious: Yes (Hospitalization)
  Sender: FDA-Public Use
  Company Number: US-ROCHE-1837581

PATIENT
  Age: 57 Year
  Sex: Female
  Weight: 51.1 kg

DRUGS (15)
  1. POLATUZUMAB VEDOTIN. [Suspect]
     Active Substance: POLATUZUMAB VEDOTIN
     Indication: FOLLICULAR LYMPHOMA
     Dosage: 1.4 OR 1.8 MILLIGRAMS PER KILOGRAM (MG/KG) ON DAY 1 OF EACH 28?DAY CYCLE FOR UP TO 6 MONTHS?LAST DOS
     Route: 042
     Dates: start: 20160324
  2. OBINUTUZUMAB. [Suspect]
     Active Substance: OBINUTUZUMAB
     Indication: FOLLICULAR LYMPHOMA
     Dosage: ON DAYS 1, 8 AND 15 OF CYCLE 1 AND ON DAY 1 OF CYCLES 2 TO 6. CYCLE LENGTH WAS 28 DAYS. ?LAST DOSE P
     Route: 042
     Dates: start: 20160324
  3. LORAZEPAM. [Concomitant]
     Active Substance: LORAZEPAM
     Indication: NAUSEA
  4. ASPIRIN. [Concomitant]
     Active Substance: ASPIRIN
     Indication: THROMBOSIS PROPHYLAXIS
     Dates: start: 20160318, end: 20161208
  5. LEVOFLOXACIN. [Concomitant]
     Active Substance: LEVOFLOXACIN
     Indication: DIARRHOEA
     Dates: start: 20161103, end: 20161208
  6. PROCHLORPERAZINE MALEATE. [Concomitant]
     Active Substance: PROCHLORPERAZINE MALEATE
     Indication: NAUSEA
     Dates: start: 20160318, end: 20161006
  7. LENALIDOMIDE [Suspect]
     Active Substance: LENALIDOMIDE
     Indication: FOLLICULAR LYMPHOMA
     Dosage: 10, 15, OR 20 MILLIGRAMS (MG) ON DAYS 1 TO 21 OF EACH 28?DAY CYCLE?LAST DOSE PRIOR TO FIRST EPISODE
     Route: 048
     Dates: start: 20160324
  8. CYCLOBENZAPRINE. [Concomitant]
     Active Substance: CYCLOBENZAPRINE
     Indication: MUSCLE STRAIN
     Dates: start: 20160526
  9. IBUPROFEN. [Concomitant]
     Active Substance: IBUPROFEN
     Indication: MUSCULOSKELETAL PAIN
     Dates: start: 20160325
  10. NYSTATIN. [Concomitant]
     Active Substance: NYSTATIN
     Indication: ORAL CANDIDIASIS
     Dates: start: 20160506
  11. POTASSIUM CHLORIDE. [Concomitant]
     Active Substance: POTASSIUM CHLORIDE
     Indication: ELECTROLYTE SUBSTITUTION THERAPY
     Dates: start: 20160920, end: 20160922
  12. ERGOCALCIFEROL. [Concomitant]
     Active Substance: ERGOCALCIFEROL
     Indication: VITAMIN D DEFICIENCY
     Dates: start: 20160324
  13. CEFALEXIN [Concomitant]
     Active Substance: CEPHALEXIN
     Indication: INFLUENZA LIKE ILLNESS
     Dates: start: 201608, end: 201608
  14. LORAZEPAM. [Concomitant]
     Active Substance: LORAZEPAM
     Indication: ANXIETY
     Dates: start: 20160318
  15. OMEPRAZOLE. [Concomitant]
     Active Substance: OMEPRAZOLE
     Indication: DYSPEPSIA
     Dates: start: 20160428, end: 20161006

REACTIONS (2)
  - Colitis [Recovered/Resolved]
  - Colitis [Recovered/Resolved]

NARRATIVE: CASE EVENT DATE: 20160918
